FAERS Safety Report 19790032 (Version 2)
Quarter: 2021Q3

REPORT INFORMATION
  Report Type: Report from Study
  Country: US (occurrence: US)
  Receive Date: 20210905
  Receipt Date: 20210928
  Transmission Date: 20211014
  Serious: Yes (Hospitalization)
  Sender: FDA-Public Use
  Company Number: US-EXELIXIS-XL18421042814

PATIENT

DRUGS (2)
  1. DURVALUMAB. [Suspect]
     Active Substance: DURVALUMAB
     Indication: OESOPHAGEAL ADENOCARCINOMA
     Dosage: 1500 MG, Q4WEEKS
     Route: 042
     Dates: start: 20210408
  2. XL184 [Suspect]
     Active Substance: CABOZANTINIB
     Indication: OESOPHAGEAL ADENOCARCINOMA
     Dosage: 40 MG, QD
     Route: 048
     Dates: start: 20210408

REACTIONS (3)
  - Immune thrombocytopenia [Recovering/Resolving]
  - Haemolytic anaemia [Recovering/Resolving]
  - Acute kidney injury [Unknown]

NARRATIVE: CASE EVENT DATE: 20210727
